FAERS Safety Report 19666882 (Version 4)
Quarter: 2021Q4

REPORT INFORMATION
  Report Type: Spontaneous
  Country: JP (occurrence: JP)
  Receive Date: 20210806
  Receipt Date: 20211118
  Transmission Date: 20220304
  Serious: Yes (Other)
  Sender: FDA-Public Use
  Company Number: JP-GLAXOSMITHKLINE-JP2021JPN165165

PATIENT
  Age: 4 Decade
  Sex: Male
  Weight: 160 kg

DRUGS (2)
  1. BENLYSTA [Suspect]
     Active Substance: BELIMUMAB
     Indication: Systemic lupus erythematosus
     Dosage: 1600 MG, MONTHLY
     Route: 042
     Dates: start: 201804
  2. PREDNISOLONE [Suspect]
     Active Substance: PREDNISOLONE
     Indication: Systemic lupus erythematosus
     Dosage: 15MG TO 20MG (RECENTLY 20MG)
     Dates: start: 2014

REACTIONS (5)
  - Intentional self-injury [Recovered/Resolved]
  - Depressive symptom [Recovered/Resolved]
  - Listless [Recovered/Resolved]
  - Sleep disorder [Recovered/Resolved]
  - Suicidal ideation [Recovered/Resolved]

NARRATIVE: CASE EVENT DATE: 20210526
